FAERS Safety Report 10052753 (Version 3)
Quarter: 2014Q2

REPORT INFORMATION
  Report Type: Spontaneous
  Country: US (occurrence: US)
  Receive Date: 20140402
  Receipt Date: 20140409
  Transmission Date: 20141212
  Serious: Yes (Hospitalization, Other)
  Sender: FDA-Public Use
  Company Number: US-BAXTER-2014BAX015706

PATIENT
  Age: 61 Year
  Sex: Female

DRUGS (3)
  1. DIANEAL LOW CALCIUM [Suspect]
     Indication: PERITONEAL DIALYSIS
     Route: 033
     Dates: start: 201312, end: 201312
  2. DIANEAL LOW CALCIUM [Suspect]
     Indication: PERITONEAL DIALYSIS
     Route: 033
     Dates: start: 201312, end: 201312
  3. DIANEAL LOW CALCIUM [Suspect]
     Route: 033

REACTIONS (4)
  - Pneumonia [Recovering/Resolving]
  - Neoplasm malignant [Unknown]
  - White blood cell count decreased [Unknown]
  - Post procedural complication [Unknown]
